FAERS Safety Report 5234091-5 (Version None)
Quarter: 2007Q1

REPORT INFORMATION
  Report Type: 
  Country: None (occurrence: None)
  Receive Date: 20070208
  Receipt Date: 20070129
  Transmission Date: 20070707
  Serious: Yes (Hospitalization)
  Sender: FDA-Public Use
  Company Number: FR-GILEAD-2006-0010863

PATIENT
  Sex: Male
  Weight: 79 kg

DRUGS (3)
  1. TRUVADA [Suspect]
     Indication: PROPHYLAXIS
     Route: 048
     Dates: start: 20060703, end: 20060705
  2. NORVIR [Suspect]
     Indication: PROPHYLAXIS
     Route: 048
     Dates: start: 20060703, end: 20060705
  3. REYATAZ [Suspect]
     Indication: PROPHYLAXIS
     Route: 048
     Dates: start: 20060703, end: 20060705

REACTIONS (2)
  - DELIRIUM [None]
  - HEPATIC ENZYME INCREASED [None]
